FAERS Safety Report 7031288-9 (Version None)
Quarter: 2010Q4

REPORT INFORMATION
  Report Type: 
  Country: None (occurrence: None)
  Receive Date: 20101006
  Receipt Date: 20100927
  Transmission Date: 20110411
  Serious: Yes (Hospitalization)
  Sender: FDA-Public Use
  Company Number: B0676405A

PATIENT
  Sex: Male

DRUGS (4)
  1. RETROVIR [Suspect]
     Indication: ANTIVIRAL PROPHYLAXIS
     Dosage: .6ML FOUR TIMES PER DAY
     Route: 048
     Dates: start: 20100411, end: 20100523
  2. COMBIVIR [Suspect]
     Indication: HIV INFECTION
     Dates: start: 20091001, end: 20100411
  3. KALETRA [Suspect]
     Indication: HIV INFECTION
     Dates: start: 20091001, end: 20100411
  4. ZOVIRAX [Concomitant]
     Indication: PROPHYLAXIS
     Dosage: 20MGK THREE TIMES PER DAY
     Route: 048
     Dates: start: 20100411, end: 20100414

REACTIONS (2)
  - CONGENITAL NYSTAGMUS [None]
  - DRUG EXPOSURE DURING PREGNANCY [None]
